FAERS Safety Report 10227892 (Version 1)
Quarter: 2014Q2

REPORT INFORMATION
  Report Type: Spontaneous
  Country: US (occurrence: None)
  Receive Date: 20140609
  Receipt Date: 20140609
  Transmission Date: 20141212
  Serious: Yes (Death, Life-Threatening, Hospitalization)
  Sender: FDA-Public Use
  Company Number: None

PATIENT
  Age: 53 Year
  Sex: Male
  Weight: 74.84 kg

DRUGS (1)
  1. LIPITOR [Suspect]
     Indication: HYPERLIPIDAEMIA
     Dates: start: 20120218, end: 20120416

REACTIONS (15)
  - Nervousness [None]
  - Burning sensation [None]
  - Erythema [None]
  - Blister [None]
  - Myalgia [None]
  - Dyspnoea [None]
  - Interstitial lung disease [None]
  - Pain [None]
  - Dermatomyositis [None]
  - Myositis [None]
  - Infection [None]
  - Rheumatoid arthritis [None]
  - Product substitution issue [None]
  - Raynaud^s phenomenon [None]
  - Skin discolouration [None]
